FAERS Safety Report 7759277-7 (Version None)
Quarter: 2011Q3

REPORT INFORMATION
  Report Type: 
  Country: None (occurrence: None)
  Receive Date: 20110919
  Receipt Date: 20110908
  Transmission Date: 20111222
  Serious: Yes (Other)
  Sender: FDA-Public Use
  Company Number: HU-ASTRAZENECA-2011SE54690

PATIENT
  Age: 37 Year
  Sex: Female

DRUGS (5)
  1. ESCITALOPRAM [Concomitant]
     Route: 048
  2. XANAX [Concomitant]
     Route: 048
  3. SEROQUEL XR [Suspect]
     Indication: SCHIZOPHRENIA
     Route: 048
  4. LAMOLEP [Concomitant]
     Indication: SCHIZOPHRENIA
     Route: 048
  5. OLANZAPINE [Concomitant]
     Indication: SCHIZOPHRENIA
     Route: 030

REACTIONS (4)
  - ANXIETY [None]
  - RESTLESSNESS [None]
  - IRRITABILITY [None]
  - DRUG ADMINISTRATION ERROR [None]
